FAERS Safety Report 6825098-2 (Version None)
Quarter: 2010Q3

REPORT INFORMATION
  Report Type: 
  Country: None (occurrence: None)
  Receive Date: 20100708
  Receipt Date: 20070105
  Transmission Date: 20110219
  Serious: No
  Sender: FDA-Public Use
  Company Number: US-PFIZER INC-2007002606

PATIENT
  Sex: Female
  Weight: 58.97 kg

DRUGS (6)
  1. CHANTIX [Suspect]
     Indication: SMOKING CESSATION THERAPY
  2. PROZAC [Concomitant]
  3. LAMICTAL [Concomitant]
  4. SEROQUEL [Concomitant]
  5. PREVACID [Concomitant]
  6. KLONOPIN [Concomitant]

REACTIONS (3)
  - HYPERHIDROSIS [None]
  - NAUSEA [None]
  - TREMOR [None]
